FAERS Safety Report 11796597 (Version 1)
Quarter: 2015Q4

REPORT INFORMATION
  Report Type: Spontaneous
  Country: US (occurrence: None)
  Receive Date: 20151202
  Receipt Date: 20151202
  Transmission Date: 20160305
  Serious: No
  Sender: FDA-Public Use
  Company Number: None

PATIENT
  Sex: Male

DRUGS (9)
  1. LASIX [Concomitant]
     Active Substance: FUROSEMIDE
  2. ALPRAZOLAM. [Concomitant]
     Active Substance: ALPRAZOLAM
  3. PREDNISONE. [Concomitant]
     Active Substance: PREDNISONE
  4. ALLOPURINOL. [Concomitant]
     Active Substance: ALLOPURINOL
  5. PROVENTIL ACR HFA [Concomitant]
  6. FUROSIMIDE [Concomitant]
     Active Substance: FUROSEMIDE
  7. LURPON DEPOT [Concomitant]
  8. ZYTIGA [Suspect]
     Active Substance: ABIRATERONE ACETATE
     Indication: NEOPLASM MALIGNANT
     Route: 048
     Dates: start: 20151005
  9. TAMSULOSIN [Concomitant]
     Active Substance: TAMSULOSIN

REACTIONS (4)
  - Insomnia [None]
  - Peripheral swelling [None]
  - Gout [None]
  - Asthenia [None]
